FAERS Safety Report 10470725 (Version 3)
Quarter: 2015Q4

REPORT INFORMATION
  Report Type: Spontaneous
  Country: DK (occurrence: DK)
  Receive Date: 20140923
  Receipt Date: 20151230
  Transmission Date: 20160304
  Serious: Yes (Hospitalization, Other)
  Sender: FDA-Public Use
  Company Number: DK-RECKITT BENCKISER PHARMACEUTICAL, INC-RB-71671-2014

PATIENT
  Age: 25 Year
  Sex: Male
  Weight: 63 kg

DRUGS (4)
  1. SUBOXONE [Suspect]
     Active Substance: BUPRENORPHINE HYDROCHLORIDE\NALOXONE HYDROCHLORIDE
     Indication: DRUG DEPENDENCE
     Dosage: 8 MG, QD
     Route: 065
  2. RIVOTRIL [Interacting]
     Active Substance: CLONAZEPAM
     Indication: SEDATIVE THERAPY
     Dosage: 2 MG, TID
     Route: 048
  3. RITALIN [Interacting]
     Active Substance: METHYLPHENIDATE HYDROCHLORIDE
     Indication: ATTENTION DEFICIT/HYPERACTIVITY DISORDER
     Dosage: 30 MG, TID
     Route: 048
     Dates: start: 2014, end: 20140902
  4. SEROQUEL [Interacting]
     Active Substance: QUETIAPINE FUMARATE
     Indication: BIPOLAR DISORDER
     Dosage: 100 MG, BID
     Route: 065

REACTIONS (2)
  - Suicidal ideation [Recovering/Resolving]
  - Drug interaction [Unknown]

NARRATIVE: CASE EVENT DATE: 2014
